FAERS Safety Report 10703584 (Version 2)
Quarter: 2015Q2

REPORT INFORMATION
  Report Type: Report from Study
  Country: JP (occurrence: None)
  Receive Date: 20150108
  Receipt Date: 20150529
  Transmission Date: 20150821
  Serious: Yes (Death, Other)
  Sender: FDA-Public Use
  Company Number: 2014MPI00690

PATIENT
  Age: 78 Year
  Sex: Male
  Weight: 70.8 kg

DRUGS (3)
  1. PREDONINE (PREDNISOLONE) [Concomitant]
  2. ADCETRIS [Suspect]
     Active Substance: BRENTUXIMAB VEDOTIN
     Indication: HODGKIN^S DISEASE
     Dosage: 1.8 MG/KG, Q21D, IV DRIP
     Route: 041
     Dates: start: 20140508, end: 20140508
  3. CORTICOSTEROIDS [Concomitant]
     Active Substance: CORTICOSTEROID NOS

REACTIONS (8)
  - Lymphocyte count decreased [None]
  - Pyrexia [None]
  - Hyperbilirubinaemia [None]
  - Platelet count decreased [None]
  - Hodgkin^s disease [None]
  - Condition aggravated [None]
  - Therapeutic response decreased [None]
  - Clonic convulsion [None]

NARRATIVE: CASE EVENT DATE: 20140509
